FAERS Safety Report 6211920 (Version 2)
Quarter: 2014Q3

REPORT INFORMATION
  Report Type: Spontaneous
  Country: US (occurrence: US)
  Receive Date: 20070110
  Receipt Date: 20140908
  Transmission Date: 20150326
  Serious: Yes (Other)
  Sender: FDA-Public Use
  Company Number: US-BRISTOL-MYERS SQUIBB COMPANY-13231113

PATIENT
  Age: 40 Year
  Sex: Female

DRUGS (1)
  1. ABILIFY [Suspect]
     Active Substance: ARIPIPRAZOLE

REACTIONS (26)
  - Weight decreased [Unknown]
  - Rheumatoid arthritis [Unknown]
  - Dizziness postural [Unknown]
  - Rhinorrhoea [Unknown]
  - Vomiting [Unknown]
  - Lethargy [Unknown]
  - Vision blurred [Unknown]
  - Pyrexia [Unknown]
  - Suicide attempt [Unknown]
  - Sedation [Unknown]
  - Cough [Unknown]
  - Alopecia [Unknown]
  - Hiatus hernia [Unknown]
  - Hearing impaired [Unknown]
  - Nasal congestion [Unknown]
  - Renal impairment [Unknown]
  - Dysphonia [Unknown]
  - Dehydration [Unknown]
  - Nephrolithiasis [Unknown]
  - Convulsion [Not Recovered/Not Resolved]
  - Ulcer [Unknown]
  - Hypersomnia [Unknown]
  - Weight increased [Unknown]
  - Osteoarthritis [Unknown]
  - Yellow skin [Unknown]
  - Amnesia [Unknown]
